FAERS Safety Report 24282903 (Version 1)
Quarter: 2024Q3

REPORT INFORMATION
  Report Type: Spontaneous
  Country: CN (occurrence: CN)
  Receive Date: 20240904
  Receipt Date: 20240904
  Transmission Date: 20241017
  Serious: Yes (Other)
  Sender: CSL BEHRING
  Company Number: CN-BEH-2024178021

PATIENT
  Age: 80 Year
  Sex: Male
  Weight: 75 kg

DRUGS (2)
  1. ALBURX [Suspect]
     Active Substance: ALBUMIN HUMAN
     Indication: Malnutrition
     Dosage: 10 ML, OD
     Route: 065
     Dates: start: 20240720, end: 20240720
  2. ALBURX [Suspect]
     Active Substance: ALBUMIN HUMAN
     Indication: Hypoproteinaemia

REACTIONS (10)
  - Shock [Recovering/Resolving]
  - Altered state of consciousness [Unknown]
  - Respiratory failure [Unknown]
  - Oxygen saturation decreased [Unknown]
  - Critical illness [Unknown]
  - Dyspnoea [Unknown]
  - Tachypnoea [Unknown]
  - Haemodynamic instability [Unknown]
  - Heart rate decreased [Recovering/Resolving]
  - Blood pressure decreased [Recovering/Resolving]

NARRATIVE: CASE EVENT DATE: 20240720
